FAERS Safety Report 7440610-0 (Version None)
Quarter: 2011Q2

REPORT INFORMATION
  Report Type: 
  Country: None (occurrence: None)
  Receive Date: 20110427
  Receipt Date: 20110419
  Transmission Date: 20111010
  Serious: Yes (Disabling)
  Sender: FDA-Public Use
  Company Number: B0714896A

PATIENT
  Sex: Female
  Weight: 36 kg

DRUGS (19)
  1. GASTER [Concomitant]
     Dosage: 40MG PER DAY
     Route: 042
     Dates: start: 20011022, end: 20011116
  2. SOLU-CORTEF [Concomitant]
     Dosage: 100MG PER DAY
     Route: 042
     Dates: start: 20011023, end: 20011028
  3. ZOVIRAX [Concomitant]
     Dosage: 180MG PER DAY
     Route: 042
     Dates: start: 20011022, end: 20011203
  4. ZOFRAN [Concomitant]
     Dosage: 4MG PER DAY
     Route: 042
     Dates: start: 20011022, end: 20011026
  5. FLUDARA [Suspect]
     Indication: STEM CELL TRANSPLANT
     Dosage: 25MGM2 PER DAY
     Route: 042
     Dates: start: 20011019, end: 20011023
  6. DIFLUCAN [Concomitant]
     Dosage: 100MG PER DAY
     Route: 042
     Dates: start: 20011022, end: 20011114
  7. MIRACLID [Concomitant]
     Dosage: 300IU3 PER DAY
     Route: 042
     Dates: start: 20011022, end: 20011031
  8. PREDONINE [Concomitant]
     Indication: IMMUNOSUPPRESSION
     Dosage: 1MGK PER DAY
     Route: 065
     Dates: start: 20020125
  9. TOBRACIN [Concomitant]
     Dosage: 30MG PER DAY
     Dates: start: 20011022, end: 20011107
  10. ALKERAN [Suspect]
     Dosage: 40MGM2 PER DAY
     Route: 042
     Dates: start: 20011020, end: 20011020
  11. ALPROSTADIL [Concomitant]
     Dosage: 260MCG PER DAY
     Dates: start: 20011022, end: 20011115
  12. ALKERAN [Suspect]
     Dosage: 40MGM2 PER DAY
     Route: 042
     Dates: start: 20011023, end: 20011023
  13. ALKERAN [Suspect]
     Indication: STEM CELL TRANSPLANT
     Dosage: 40MGM2 PER DAY
     Route: 042
     Dates: start: 20011015, end: 20011015
  14. METHOTREXATE [Concomitant]
     Indication: IMMUNOSUPPRESSION
     Dosage: 10MGM2 PER DAY
     Route: 065
     Dates: start: 20011026, end: 20011031
  15. FLUMARIN [Concomitant]
     Dosage: 2G PER DAY
     Route: 042
     Dates: start: 20011022, end: 20011207
  16. DIAMOX [Concomitant]
     Dosage: 1000MG PER DAY
     Dates: start: 20011022, end: 20011029
  17. KYTRIL [Concomitant]
     Dosage: 6MG PER DAY
     Dates: start: 20011022, end: 20011025
  18. TACROLIMUS HYDRATE [Concomitant]
     Indication: IMMUNOSUPPRESSION
     Dosage: .03MGK PER DAY
     Route: 065
     Dates: start: 20011025, end: 20011231
  19. STADOL [Concomitant]
     Dosage: 2MG PER DAY
     Route: 030
     Dates: start: 20011022, end: 20011203

REACTIONS (4)
  - HYPERTENSION [None]
  - HAEMATURIA [None]
  - SEPSIS [None]
  - CARDIAC FAILURE [None]
